FAERS Safety Report 22046885 (Version 1)
Quarter: 2023Q1

REPORT INFORMATION
  Report Type: Spontaneous
  Country: KR (occurrence: KR)
  Receive Date: 20230228
  Receipt Date: 20230228
  Transmission Date: 20230417
  Serious: Yes (Other)
  Sender: FDA-Public Use
  Company Number: KR-UCBSA-2023009383

PATIENT
  Age: 65 Year
  Sex: Male

DRUGS (2)
  1. KEPPRA [Suspect]
     Active Substance: LEVETIRACETAM
     Indication: Epilepsy
     Dosage: 500 MILLIGRAM, 2X/DAY (BID)
     Dates: start: 20200712, end: 20201016
  2. OXIRACETAM [Suspect]
     Active Substance: OXIRACETAM
     Indication: Subdural haemorrhage
     Dosage: 800 MILLIGRAM, 2X/DAY (BID)
     Dates: start: 20200712, end: 20201016

REACTIONS (1)
  - Leukopenia [Recovered/Resolved]

NARRATIVE: CASE EVENT DATE: 20200905
